FAERS Safety Report 14563056 (Version 1)
Quarter: 2018Q1

REPORT INFORMATION
  Report Type: Spontaneous
  Country: GB (occurrence: GB)
  Receive Date: 20180222
  Receipt Date: 20180222
  Transmission Date: 20180509
  Serious: Yes (Hospitalization)
  Sender: FDA-Public Use
  Company Number: GB-LANNETT COMPANY, INC.-GB-2018LAN000476

PATIENT
  Age: 52 Year
  Sex: Male

DRUGS (5)
  1. ACETAZOLAMIDE. [Suspect]
     Active Substance: ACETAZOLAMIDE
     Dosage: 125 MG, TDS
     Route: 048
  2. APRACLONIDINE [Concomitant]
     Active Substance: APRACLONIDINE HYDROCHLORIDE
     Indication: INTRAOCULAR PRESSURE INCREASED
     Dosage: 1 %, UNK
  3. DEXAMETHASONE. [Concomitant]
     Active Substance: DEXAMETHASONE
     Indication: PRODUCT USED FOR UNKNOWN INDICATION
     Dosage: 0.1 %, 6?/DAY
  4. ACETAZOLAMIDE. [Suspect]
     Active Substance: ACETAZOLAMIDE
     Dosage: 125 MG, TDS
     Route: 048
  5. ACETAZOLAMIDE. [Suspect]
     Active Substance: ACETAZOLAMIDE
     Indication: INTRAOCULAR PRESSURE INCREASED
     Dosage: 250 MG, UNK
     Route: 048

REACTIONS (3)
  - Anuria [Recovered/Resolved]
  - Crystalluria [Recovered/Resolved]
  - Acute kidney injury [Recovered/Resolved]
